FAERS Safety Report 9153630 (Version 1)
Quarter: 2013Q1

REPORT INFORMATION
  Report Type: Spontaneous
  Country: TH (occurrence: None)
  Receive Date: 20130204
  Receipt Date: 20130204
  Transmission Date: 20140127
  Serious: Yes (Other)
  Sender: FDA-Public Use
  Company Number: IPC201301-00005

PATIENT
  Age: 42 Year
  Sex: Male

DRUGS (3)
  1. ATENOLOL (ATENOLOL) (ATENOLOL) [Suspect]
     Indication: HYPERTENSION
  2. CHLORHEXIDINE [Suspect]
     Route: 048
  3. ENALAPRIL [Concomitant]

REACTIONS (2)
  - Pemphigoid [None]
  - Mucous membrane disorder [None]
